FAERS Safety Report 9271335 (Version 2)
Quarter: 2013Q3

REPORT INFORMATION
  Report Type: Report from Study
  Country: TR (occurrence: TR)
  Receive Date: 20130506
  Receipt Date: 20130815
  Transmission Date: 20140515
  Serious: Yes (Other)
  Sender: FDA-Public Use
  Company Number: PHHY2013TR042690

PATIENT
  Age: 34 Year
  Sex: Male
  Weight: 60 kg

DRUGS (5)
  1. EXJADE [Suspect]
     Indication: THALASSAEMIA BETA
     Dosage: 2000 MG, DAILY
     Route: 048
     Dates: start: 2007
  2. DELIX PROTECT [Concomitant]
     Dosage: ONCE DAILY IN EVENING
  3. INSIDON [Concomitant]
     Dosage: ONCE DAILY IN EVENING
  4. BELOC [Concomitant]
     Dosage: ONCE DAILY IN EVENING
  5. DOLADAMON [Concomitant]
     Dosage: ONCE DAILY IN EVENING

REACTIONS (8)
  - Cardiac murmur [Not Recovered/Not Resolved]
  - Osteoporosis [Not Recovered/Not Resolved]
  - Hypotension [Not Recovered/Not Resolved]
  - Sinusitis [Not Recovered/Not Resolved]
  - Hepatomegaly [Not Recovered/Not Resolved]
  - Serum ferritin increased [Not Recovered/Not Resolved]
  - Aspartate aminotransferase increased [Unknown]
  - Alanine aminotransferase increased [Unknown]
